FAERS Safety Report 8629726 (Version 4)
Quarter: 2012Q4

REPORT INFORMATION
  Report Type: 
  Country: FR (occurrence: FR)
  Receive Date: 20120607
  Receipt Date: 20121024
  Transmission Date: 20130627
  Serious: Yes (Hospitalization, Other)
  Sender: FDA-Public Use
  Company Number: FR-MSD-2012SP029261

PATIENT
  Age: 65 Year
  Sex: Male
  Weight: 68.6 kg

DRUGS (10)
  1. VICTRELIS [Suspect]
     Indication: HEPATITIS C
     Dosage: 800 mg, tid
     Dates: start: 20110426, end: 20110913
  2. VICTRELIS [Suspect]
     Dosage: 600 mg, qd
     Dates: start: 20110914, end: 20120226
  3. VIRAFERONPEG [Suspect]
     Indication: HEPATITIS C
     Dosage: 90 ?g, QW
     Dates: start: 20110329, end: 20110912
  4. VIRAFERONPEG [Suspect]
     Dosage: 80 Microgram, qw
     Dates: start: 20110913, end: 20120226
  5. RIBAVIRIN [Suspect]
     Indication: HEPATITIS C
     Dosage: 600 mg, QD
     Dates: start: 20110329, end: 20110913
  6. RIBAVIRIN [Suspect]
     Dosage: 400 mg, QD
     Dates: start: 20110914, end: 20120226
  7. NEORECORMON [Concomitant]
     Indication: ANAEMIA
     Dosage: 3000 DF, QW
     Dates: start: 20110512
  8. ACETAMINOPHEN [Concomitant]
     Indication: PAIN
     Dosage: 1 g, prn
     Dates: start: 20110322
  9. LOPERAMID [Concomitant]
     Indication: DIARRHOEA
     Dosage: 2 mg, prn
     Dates: start: 20110322
  10. DAIVOBET [Concomitant]
     Indication: PSORIASIS
     Dosage: UNK
     Dates: start: 20110817

REACTIONS (2)
  - Hepatocellular carcinoma [Recovered/Resolved with Sequelae]
  - Malaise [Recovered/Resolved]
